FAERS Safety Report 9002601 (Version 2)
Quarter: 2013Q1

REPORT INFORMATION
  Report Type: Spontaneous
  Country: US (occurrence: US)
  Receive Date: 20130107
  Receipt Date: 20130222
  Transmission Date: 20140127
  Serious: Yes (Other)
  Sender: FDA-Public Use
  Company Number: US-UCBSA-074353

PATIENT
  Age: 48 Year
  Sex: Female

DRUGS (1)
  1. KEPPRA XR [Suspect]
     Indication: CONVULSION
     Dosage: 4000 MG/DAY

REACTIONS (2)
  - Renal transplant [Recovering/Resolving]
  - Overdose [Unknown]
